FAERS Safety Report 5941735-9 (Version None)
Quarter: 2008Q4

REPORT INFORMATION
  Report Type: 
  Country: None (occurrence: None)
  Receive Date: 20081105
  Receipt Date: 20081027
  Transmission Date: 20090506
  Serious: Yes (Other)
  Sender: FDA-Public Use
  Company Number: DE-BRISTOL-MYERS SQUIBB COMPANY-14386601

PATIENT

DRUGS (3)
  1. EFAVIRENZ [Suspect]
     Indication: HIV INFECTION
  2. TENOFOVIR [Suspect]
     Indication: HIV INFECTION
  3. ABACAVIR [Suspect]
     Indication: HIV INFECTION

REACTIONS (5)
  - DRUG RESISTANCE [None]
  - GASTROINTESTINAL DISORDER [None]
  - GENE MUTATION [None]
  - NERVOUS SYSTEM DISORDER [None]
  - RASH [None]
